FAERS Safety Report 10165515 (Version 1)
Quarter: 2014Q2

REPORT INFORMATION
  Report Type: Spontaneous
  Country: US (occurrence: US)
  Receive Date: 20140510
  Receipt Date: 20140510
  Transmission Date: 20141212
  Serious: No
  Sender: FDA-Public Use
  Company Number: US-BRISTOL-MYERS SQUIBB COMPANY-19841899

PATIENT
  Age: 56 Year
  Sex: Male
  Weight: 176.87 kg

DRUGS (3)
  1. BYDUREON [Suspect]
     Indication: TYPE 2 DIABETES MELLITUS
     Dosage: PRESCRIPTION #0375660-10156
     Dates: start: 2013
  2. HUMALOG [Suspect]
     Dosage: 1DF:50/50/50 UNITS
     Route: 058
  3. LANTUS [Suspect]
     Dosage: 1DF:110UNITS
     Route: 058

REACTIONS (2)
  - Blood glucose increased [Recovering/Resolving]
  - Drug dose omission [Unknown]
